FAERS Safety Report 23909980 (Version 2)
Quarter: 2024Q2

REPORT INFORMATION
  Report Type: Spontaneous
  Country: CN (occurrence: CN)
  Receive Date: 20240528
  Receipt Date: 20240606
  Transmission Date: 20240716
  Serious: Yes (Other)
  Sender: FDA-Public Use
  Company Number: CN-002147023-NVSC2024CN111936

PATIENT
  Age: 50 Year
  Sex: Male
  Weight: 69 kg

DRUGS (1)
  1. SACUBITRIL\VALSARTAN [Suspect]
     Active Substance: SACUBITRIL\VALSARTAN
     Indication: Blood pressure increased
     Dosage: 100 MG, QD
     Route: 048
     Dates: start: 20240521, end: 20240521

REACTIONS (3)
  - Vomiting [Recovering/Resolving]
  - Blood pressure increased [Recovering/Resolving]
  - Nausea [Recovering/Resolving]

NARRATIVE: CASE EVENT DATE: 20240521
